FAERS Safety Report 19175017 (Version 1)
Quarter: 2021Q2

REPORT INFORMATION
  Report Type: Spontaneous
  Country: GB (occurrence: GB)
  Receive Date: 20210423
  Receipt Date: 20210423
  Transmission Date: 20210717
  Serious: Yes (Life-Threatening, Hospitalization, Disabling, Other)
  Sender: FDA-Public Use
  Company Number: NVSC2021GB089558

PATIENT
  Age: 23 Year
  Sex: Male
  Weight: 81 kg

DRUGS (8)
  1. AVEENO [Concomitant]
     Active Substance: DIMETHICONE\HOMOSALATE\OCTINOXATE\OCTISALATE\TITANIUM DIOXIDE
     Indication: PRODUCT USED FOR UNKNOWN INDICATION
     Dosage: UNK
     Route: 065
  2. MOMETASONE FUROATE. [Suspect]
     Active Substance: MOMETASONE FUROATE
     Indication: PRODUCT USED FOR UNKNOWN INDICATION
     Dosage: ONCE OR TWICE A DAY EVERY OTHER DAY OR SO
     Route: 061
     Dates: start: 20160901, end: 20210309
  3. FUCIBET [Suspect]
     Active Substance: BETAMETHASONE VALERATE\FUSIDIC ACID
     Indication: ECZEMA
     Dosage: UNK (ONCE OR TWICE A DAY EVERY OTHER DAY OR SO)
     Route: 061
     Dates: start: 20160901, end: 20210309
  4. HYDROCORTISON [Suspect]
     Active Substance: HYDROCORTISONE
     Indication: ECZEMA
     Dosage: UNK (ONCE OR TWICE A DAY EVERY OTHER DAY OR SO)
     Route: 061
     Dates: start: 20160901, end: 20210309
  5. BETAMETHASONE. [Suspect]
     Active Substance: BETAMETHASONE
     Indication: ECZEMA
     Dosage: ONCE OR TWICE A DAY EVERY OTHER DAY OR SO
     Route: 061
     Dates: start: 20160901, end: 20210309
  6. DERMOL [Concomitant]
     Active Substance: BENZALKONIUM CHLORIDE\CHLORHEXIDINE HYDROCHLORIDE\ISOPROPYL MYRISTATE\PARAFFIN
     Indication: PRODUCT USED FOR UNKNOWN INDICATION
     Dosage: UNK
     Route: 065
  7. ELOCON [Suspect]
     Active Substance: MOMETASONE FUROATE
     Indication: ECZEMA
     Dosage: ONCE OR TWICE A DAY EVERY OTHER DAY OR SO
     Route: 061
     Dates: start: 20160901, end: 20210309
  8. FEXOFENADINE HYDROCHLORIDE. [Concomitant]
     Active Substance: FEXOFENADINE HYDROCHLORIDE
     Indication: PRODUCT USED FOR UNKNOWN INDICATION
     Dosage: UNK
     Route: 065

REACTIONS (9)
  - Skin weeping [Not Recovered/Not Resolved]
  - Skin hyperpigmentation [Unknown]
  - Inflammation [Not Recovered/Not Resolved]
  - Skin discolouration [Not Recovered/Not Resolved]
  - Hyperhidrosis [Recovering/Resolving]
  - Scar [Unknown]
  - Skin exfoliation [Not Recovered/Not Resolved]
  - Neuralgia [Not Recovered/Not Resolved]
  - Pruritus [Unknown]

NARRATIVE: CASE EVENT DATE: 20160915
